FAERS Safety Report 18509892 (Version 1)
Quarter: 2020Q4

REPORT INFORMATION
  Report Type: Spontaneous
  Country: US (occurrence: US)
  Receive Date: 20201117
  Receipt Date: 20201117
  Transmission Date: 20210114
  Serious: Yes (Other)
  Sender: FDA-Public Use
  Company Number: US-TEVA-2020-US-1849768

PATIENT
  Sex: Female

DRUGS (2)
  1. AJOVY [Suspect]
     Active Substance: FREMANEZUMAB-VFRM
     Route: 065
  2. AJOVY [Suspect]
     Active Substance: FREMANEZUMAB-VFRM

REACTIONS (9)
  - Delirium [Unknown]
  - Cortisol increased [Unknown]
  - Feeling abnormal [Unknown]
  - Hypermobility syndrome [Unknown]
  - Amnesia [Unknown]
  - Adrenal disorder [Unknown]
  - Aphasia [Unknown]
  - Migraine [Unknown]
  - Pain [Unknown]
